FAERS Safety Report 14099590 (Version 2)
Quarter: 2017Q4

REPORT INFORMATION
  Report Type: Not Available
  Country: None (occurrence: US)
  Receive Date: 20171017
  Receipt Date: 20171017
  Transmission Date: 20180321
  Serious: No
  Sender: FDA-Public Use
  Company Number: US-AKORN-70510

PATIENT

DRUGS (1)
  1. OFLOXACIN. [Suspect]
     Active Substance: OFLOXACIN

REACTIONS (1)
  - Therapeutic response delayed [None]
